FAERS Safety Report 9439342 (Version 1)
Quarter: 2013Q3

REPORT INFORMATION
  Report Type: Spontaneous
  Country: US (occurrence: US)
  Receive Date: 20130805
  Receipt Date: 20130805
  Transmission Date: 20140515
  Serious: Yes (Other)
  Sender: FDA-Public Use
  Company Number: US-ELI_LILLY_AND_COMPANY-US201307008123

PATIENT
  Age: 51 Year
  Sex: Female

DRUGS (1)
  1. CYMBALTA [Suspect]
     Indication: FIBROMYALGIA
     Dosage: 60 MG, QD
     Route: 065

REACTIONS (11)
  - Cognitive disorder [Unknown]
  - Chest pain [Unknown]
  - Memory impairment [Unknown]
  - Arthralgia [Unknown]
  - Movement disorder [Unknown]
  - Night sweats [Unknown]
  - Feeling abnormal [Unknown]
  - Hypoaesthesia [Unknown]
  - Malaise [Unknown]
  - Withdrawal syndrome [Unknown]
  - Drug dose omission [Unknown]
